FAERS Safety Report 25048412 (Version 1)
Quarter: 2025Q1

REPORT INFORMATION
  Report Type: Spontaneous
  Country: CN (occurrence: CN)
  Receive Date: 20250307
  Receipt Date: 20250307
  Transmission Date: 20250409
  Serious: Yes (Other)
  Sender: ALEXION PHARMACEUTICALS
  Company Number: CN-ASTRAZENECA-202503CHN000907CN

PATIENT
  Age: 75 Year
  Weight: 70 kg

DRUGS (1)
  1. PULMICORT RESPULES [Suspect]
     Active Substance: BUDESONIDE
     Indication: Dyspnoea
     Dosage: 2 MILLIGRAM, QD

REACTIONS (2)
  - Asphyxia [Recovering/Resolving]
  - Dyspnoea [Recovering/Resolving]
